FAERS Safety Report 11418459 (Version 1)
Quarter: 2015Q3

REPORT INFORMATION
  Report Type: Spontaneous
  Country: US (occurrence: US)
  Receive Date: 20150826
  Receipt Date: 20150826
  Transmission Date: 20151125
  Serious: No
  Sender: FDA-Public Use
  Company Number: US-NOVEN PHARMACEUTICALS, INC.-US2015000420

PATIENT
  Age: 54 Year
  Sex: Female

DRUGS (5)
  1. ARMOUR THYROID [Concomitant]
     Active Substance: THYROID, PORCINE\THYROID, UNSPECIFIED
  2. MINIVELLE [Suspect]
     Active Substance: ESTRADIOL
     Indication: HOT FLUSH
     Dosage: 0.0375 MG, UNKNOWN
     Route: 062
     Dates: start: 2011, end: 201505
  3. PROGESTERONE. [Concomitant]
     Active Substance: PROGESTERONE
  4. MINIVELLE [Suspect]
     Active Substance: ESTRADIOL
     Indication: NIGHT SWEATS
     Dosage: 0.1 UNK, UNK
     Route: 062
     Dates: start: 201505, end: 201505
  5. MINIVELLE [Suspect]
     Active Substance: ESTRADIOL
     Dosage: CUTTING THE PATCHES INTO HALF SINCE 2 WEEKS, UNK
     Route: 062
     Dates: start: 201505

REACTIONS (5)
  - Breast discomfort [Recovered/Resolved]
  - Ill-defined disorder [Recovered/Resolved]
  - Wrong technique in product usage process [Not Recovered/Not Resolved]
  - Breast enlargement [Recovered/Resolved]
  - Breast pain [Recovered/Resolved]

NARRATIVE: CASE EVENT DATE: 201505
